FAERS Safety Report 9877164 (Version 1)
Quarter: 2014Q1

REPORT INFORMATION
  Report Type: Spontaneous
  Country: GB (occurrence: None)
  Receive Date: 20140204
  Receipt Date: 20140204
  Transmission Date: 20141002
  Serious: Yes (Other)
  Sender: FDA-Public Use
  Company Number: AUR-APL-2014-00965

PATIENT
  Age: 40 Year
  Sex: Male
  Weight: 67.4 kg

DRUGS (7)
  1. GABAPENTIN [Suspect]
     Indication: NEURALGIA
     Dosage: 1 D
     Route: 048
  2. CETIRIZINE HYDROCHLORIDE [Concomitant]
  3. CO-CODAMOL (PANADEINE CO) [Concomitant]
  4. DARUNAVIR (DARUNAVIR) [Concomitant]
  5. RITONAVIR (RITONAVIR) [Concomitant]
  6. SEPTRIN (BACTRIM) [Concomitant]
  7. TRUVADA [Concomitant]

REACTIONS (13)
  - Somnolence [None]
  - Myoclonus [None]
  - Muscle spasms [None]
  - Hallucination [None]
  - Feeling hot [None]
  - Trance [None]
  - Speech disorder [None]
  - Hallucination, synaesthetic [None]
  - Skin discolouration [None]
  - Food craving [None]
  - Feeling abnormal [None]
  - Pain in extremity [None]
  - Arthralgia [None]
